FAERS Safety Report 19015337 (Version 1)
Quarter: 2021Q1

REPORT INFORMATION
  Report Type: Spontaneous
  Country: JP (occurrence: JP)
  Receive Date: 20210316
  Receipt Date: 20210316
  Transmission Date: 20210420
  Serious: Yes (Other)
  Sender: FDA-Public Use
  Company Number: NVSJ2021JP003472

PATIENT
  Age: 74 Year
  Sex: Male

DRUGS (2)
  1. ZOLEDRONIC ACID [Suspect]
     Active Substance: ZOLEDRONIC ACID
     Indication: METASTASES TO BONE
  2. ZOLEDRONIC ACID [Suspect]
     Active Substance: ZOLEDRONIC ACID
     Indication: PROSTATE CANCER
     Dosage: UNK
     Route: 065
     Dates: start: 201106

REACTIONS (6)
  - Jaw fracture [Unknown]
  - Fistula [Unknown]
  - Pain in jaw [Unknown]
  - Swelling [Unknown]
  - Product use in unapproved indication [Unknown]
  - Osteonecrosis of jaw [Unknown]
